FAERS Safety Report 4366085-6 (Version None)
Quarter: 2004Q2

REPORT INFORMATION
  Report Type: 
  Country: None (occurrence: None)
  Receive Date: 20040527
  Receipt Date: 20040519
  Transmission Date: 20050107
  Serious: Yes (Hospitalization)
  Sender: FDA-Public Use
  Company Number: PHBS2004JP06637

PATIENT
  Age: 19 Year
  Sex: Male

DRUGS (10)
  1. CYCLOSPORINE [Suspect]
     Indication: BONE MARROW TRANSPLANT
     Dosage: 3 MG/KG/DAY
     Route: 065
     Dates: start: 20020301
  2. PREDNISOLONE [Suspect]
     Indication: BONE MARROW TRANSPLANT
     Route: 065
  3. PREDNISOLONE [Suspect]
     Dosage: 1 MGKG/DAY
     Route: 065
     Dates: start: 20020101, end: 20020101
  4. METHOTREXATE [Concomitant]
     Dosage: 10 MG/M2/DAY ON DAY 1
  5. METHOTREXATE [Concomitant]
     Dosage: 7 MG/M2/DAY ON DAY 3
  6. METHOTREXATE [Concomitant]
     Dosage: 7 MG/M2/DAY ON DAY 6
  7. CYTARABINE [Concomitant]
  8. MERCAPTOPURINE [Concomitant]
  9. CYCLOPHOSPHAMIDE [Concomitant]
     Indication: BONE MARROW CONDITIONING REGIMEN
     Dosage: 120 MG/KG/DAY
  10. BUSULFAN [Concomitant]
     Indication: BONE MARROW CONDITIONING REGIMEN
     Dosage: 8 MG/KG/DAY

REACTIONS (11)
  - ABDOMINAL PAIN UPPER [None]
  - ABDOMINAL TENDERNESS [None]
  - CYTOMEGALOVIRUS ANTIGEN POSITIVE [None]
  - CYTOMEGALOVIRUS GASTROINTESTINAL INFECTION [None]
  - DIARRHOEA [None]
  - GASTRITIS EROSIVE [None]
  - GRAFT VERSUS HOST DISEASE [None]
  - NAUSEA [None]
  - NEUTROPENIA [None]
  - PYREXIA [None]
  - RASH [None]
